FAERS Safety Report 24430729 (Version 2)
Quarter: 2024Q4

REPORT INFORMATION
  Report Type: Report from Study
  Country: PT (occurrence: PT)
  Receive Date: 20241013
  Receipt Date: 20241024
  Transmission Date: 20250114
  Serious: Yes (Other)
  Sender: ABBVIE
  Company Number: PT-ABBVIE-5904595

PATIENT
  Age: 67 Year
  Sex: Female

DRUGS (7)
  1. CARBIDOPA\LEVODOPA [Suspect]
     Active Substance: CARBIDOPA\LEVODOPA
     Indication: Parkinson^s disease
     Dosage: 20 MG + 5 MG
     Route: 050
     Dates: start: 20231010
  2. CARBIDOPA\LEVODOPA [Suspect]
     Active Substance: CARBIDOPA\LEVODOPA
     Dosage: 20 MG + 5 MG (VIA PEG)?MORN:15ML;MAINT:4.3ML/H;EXTR:1ML
     Route: 050
     Dates: start: 20240728, end: 20240811
  3. CARBIDOPA\LEVODOPA [Suspect]
     Active Substance: CARBIDOPA\LEVODOPA
     Dosage: 20 MG + 5 MG (VIA PEG)?MORN:9ML;MAINT:5.4ML/H;EXTR:4.2ML
     Route: 050
     Dates: start: 20240811
  4. CLOZAPINE [Concomitant]
     Active Substance: CLOZAPINE
     Indication: Product used for unknown indication
     Dosage: FORM STRENGTH: 12.5 MG?FIRST ADMIN DATE: BEFORE DUODOPA
     Route: 048
  5. RIVOTRIL [Concomitant]
     Active Substance: CLONAZEPAM
     Indication: Product used for unknown indication
     Dosage: DOSE FREQUENCY: 1 TABLET AT BEDTIME? FORM STRENGTH: 0.5 MG  ?FIRST ADMIN DATE: BEFORE DUODOPA
     Route: 048
  6. SINEMET CR [Concomitant]
     Active Substance: CARBIDOPA\LEVODOPA
     Indication: Product used for unknown indication
     Dosage: FREQUENCY TEXT: AT BEDTIME?FIRST ADMIN DATE: BEFORE DUODOPA?DOSE: 2 TABLETS
     Route: 048
  7. Folifer [Concomitant]
     Indication: Product used for unknown indication
     Dosage: FIRST ADMIN DATE: BEFORE DUODOPA

REACTIONS (4)
  - Urinary tract infection [Not Recovered/Not Resolved]
  - Dysuria [Not Recovered/Not Resolved]
  - Urinary retention [Not Recovered/Not Resolved]
  - White blood cells urine positive [Not Recovered/Not Resolved]

NARRATIVE: CASE EVENT DATE: 20240801
